FAERS Safety Report 8591403-2 (Version None)
Quarter: 2012Q3

REPORT INFORMATION
  Report Type: 
  Country: None (occurrence: None)
  Receive Date: 20120803
  Receipt Date: 20120803
  Transmission Date: 20120928
  Serious: Yes (Hospitalization, Other)
  Sender: FDA-Public Use
  Company Number: None

PATIENT
  Age: 80 Year
  Sex: Female
  Weight: 92.4 kg

DRUGS (1)
  1. CEFEPIME HYDROCHLORIDE [Suspect]
     Indication: PNEUMONIA
     Dates: start: 20120727, end: 20120801

REACTIONS (2)
  - LETHARGY [None]
  - STATUS EPILEPTICUS [None]
